FAERS Safety Report 16705720 (Version 1)
Quarter: 2019Q3

REPORT INFORMATION
  Report Type: Spontaneous
  Country: US (occurrence: US)
  Receive Date: 20190815
  Receipt Date: 20190815
  Transmission Date: 20191004
  Serious: No
  Sender: FDA-Public Use
  Company Number: US-MYLANLABS-2019M1071872

PATIENT
  Sex: Female

DRUGS (2)
  1. LEVOTHYROXINE SODIUM TABLETS, USP [Suspect]
     Active Substance: LEVOTHYROXINE SODIUM
     Indication: METHYLENETETRAHYDROFOLATE REDUCTASE DEFICIENCY
     Dosage: 50 MICROGRAM
  2. LEVOTHYROXINE SODIUM TABLETS, USP [Suspect]
     Active Substance: LEVOTHYROXINE SODIUM
     Indication: METHYLENETETRAHYDROFOLATE REDUCTASE DEFICIENCY
     Dosage: UNK

REACTIONS (8)
  - Drug ineffective [Unknown]
  - Abdominal discomfort [Unknown]
  - Rash [Recovering/Resolving]
  - Product dose omission [Unknown]
  - Dysphonia [Recovered/Resolved]
  - Hypersensitivity [Unknown]
  - Alopecia [Not Recovered/Not Resolved]
  - Rash pruritic [Unknown]
